FAERS Safety Report 17117907 (Version 1)
Quarter: 2019Q4

REPORT INFORMATION
  Report Type: Spontaneous
  Country: US (occurrence: US)
  Receive Date: 20191205
  Receipt Date: 20191205
  Transmission Date: 20200122
  Serious: Yes (Hospitalization)
  Sender: FDA-Public Use
  Company Number: US-VERTEX PHARMACEUTICALS-2019-011944

PATIENT
  Age: 29 Year
  Sex: Male

DRUGS (1)
  1. TRIKAFTA [Suspect]
     Active Substance: ELEXACAFTOR\IVACAFTOR\TEZACAFTOR
     Indication: CYSTIC FIBROSIS
     Dosage: 2 TABLETS ELE 100MG/TEZ 50MG/IVA 75MG AM AND 1 TABLET IVA 150MG, PM
     Route: 048
     Dates: start: 20191108, end: 20191118

REACTIONS (4)
  - Constipation [Unknown]
  - Liver function test increased [Recovering/Resolving]
  - Cholecystectomy [Unknown]
  - Abdominal pain [Recovering/Resolving]

NARRATIVE: CASE EVENT DATE: 20191112
